FAERS Safety Report 5973180-4 (Version None)
Quarter: 2008Q4

REPORT INFORMATION
  Report Type: 
  Country: None (occurrence: None)
  Receive Date: 20081201
  Receipt Date: 20081121
  Transmission Date: 20090506
  Serious: Yes (Hospitalization)
  Sender: FDA-Public Use
  Company Number: IT-BAXTER-2008BH012831

PATIENT
  Age: 44 Year
  Sex: Male

DRUGS (7)
  1. ENDOXAN BAXTER [Suspect]
     Indication: VASCULITIS
     Route: 048
     Dates: start: 20081010, end: 20081021
  2. TRIATEC [Concomitant]
     Route: 048
  3. AMLODIPINE [Concomitant]
     Route: 048
  4. ESOMEPRAZOLE MAGNESIUM [Concomitant]
     Route: 048
  5. MERREM [Concomitant]
     Route: 042
  6. URBASON [Concomitant]
     Route: 048
  7. ZANTAC [Concomitant]
     Route: 048

REACTIONS (3)
  - EYE HAEMORRHAGE [None]
  - SKIN HAEMORRHAGE [None]
  - THROMBOCYTOPENIA [None]
